FAERS Safety Report 7262051-1 (Version None)
Quarter: 2011Q1

REPORT INFORMATION
  Report Type: 
  Country: None (occurrence: None)
  Receive Date: 20110130
  Receipt Date: 20101206
  Transmission Date: 20110831
  Serious: No
  Sender: FDA-Public Use
  Company Number: US-ABBOTT-10P-163-0681450-00

PATIENT
  Sex: Female

DRUGS (3)
  1. LEXAPRO [Concomitant]
     Indication: DEPRESSION
  2. SYNTHROID [Concomitant]
     Indication: HYPOTHYROIDISM
  3. HUMIRA [Suspect]
     Indication: CROHN'S DISEASE
     Dosage: 80MG SQ DAY ONE
     Dates: start: 20101023, end: 20101023

REACTIONS (8)
  - INCORRECT DOSE ADMINISTERED [None]
  - SPEECH DISORDER [None]
  - HEADACHE [None]
  - NAUSEA [None]
  - DYSPNOEA [None]
  - SWELLING FACE [None]
  - PAIN IN JAW [None]
  - INJECTION SITE PAIN [None]
